FAERS Safety Report 8044012-8 (Version None)
Quarter: 2012Q1

REPORT INFORMATION
  Report Type: 
  Country: None (occurrence: None)
  Receive Date: 20120113
  Receipt Date: 20120104
  Transmission Date: 20120608
  Serious: Yes (Other)
  Sender: FDA-Public Use
  Company Number: FR-ELI_LILLY_AND_COMPANY-FR201112001029

PATIENT
  Age: 67 Year
  Sex: Female
  Weight: 64 kg

DRUGS (5)
  1. OLANZAPINE [Suspect]
     Indication: PSYCHOTIC DISORDER
     Dosage: 300 MG, OTHER EVERY TWO WEEKS
     Route: 030
     Dates: start: 20111017, end: 20111031
  2. DUPHALAC [Concomitant]
     Indication: CONSTIPATION
     Dosage: UNK, TID
     Route: 048
     Dates: start: 20110919
  3. ZYPREXA [Suspect]
     Indication: PSYCHOTIC DISORDER
     Dosage: 10 MG, QD
     Route: 048
     Dates: start: 20110825
  4. SULFARLEM [Concomitant]
     Indication: DRY MOUTH
     Dosage: 25 MG, TID
     Route: 048
     Dates: start: 20110829
  5. ZYPREXA [Suspect]
     Dosage: 20 MG, QD
     Route: 048
     Dates: end: 20111017

REACTIONS (4)
  - TRANSAMINASES INCREASED [None]
  - GENERALISED OEDEMA [None]
  - WEIGHT INCREASED [None]
  - GAMMA-GLUTAMYLTRANSFERASE INCREASED [None]
